FAERS Safety Report 24309693 (Version 1)
Quarter: 2024Q3

REPORT INFORMATION
  Report Type: Spontaneous
  Country: CN (occurrence: CN)
  Receive Date: 20240912
  Receipt Date: 20240912
  Transmission Date: 20241016
  Serious: Yes (Death, Hospitalization, Other)
  Sender: RANBAXY
  Company Number: CN-SUN PHARMACEUTICAL INDUSTRIES LTD-2024R1-467269

PATIENT
  Age: 25 Year
  Sex: Male

DRUGS (1)
  1. PREDNISONE [Suspect]
     Active Substance: PREDNISONE
     Indication: Nephrotic syndrome
     Dosage: 50 MILLIGRAM, DAILY
     Route: 048

REACTIONS (10)
  - Haemorrhagic varicella syndrome [Fatal]
  - Cytomegalovirus infection [Fatal]
  - Condition aggravated [Unknown]
  - Haematuria [Unknown]
  - Disseminated intravascular coagulation [Unknown]
  - Sepsis [Unknown]
  - Shock haemorrhagic [Unknown]
  - Acute hepatic failure [Unknown]
  - Haemolysis [Unknown]
  - Varicella [Unknown]
